FAERS Safety Report 7328400-0 (Version None)
Quarter: 2011Q1

REPORT INFORMATION
  Report Type: 
  Country: None (occurrence: None)
  Receive Date: 20110303
  Receipt Date: 20110222
  Transmission Date: 20110831
  Serious: Yes (Hospitalization, Other)
  Sender: FDA-Public Use
  Company Number: US-SANOFI-AVENTIS-2011SA000602

PATIENT
  Age: 75 Year
  Sex: Female

DRUGS (5)
  1. ANTIHYPERTENSIVES [Concomitant]
  2. RILUTEK [Suspect]
     Indication: AMYOTROPHIC LATERAL SCLEROSIS
     Route: 048
     Dates: start: 20101201, end: 20110201
  3. RILUTEK [Suspect]
     Route: 048
     Dates: start: 20110201
  4. LISINOPRIL [Concomitant]
  5. COREG [Concomitant]

REACTIONS (3)
  - ASTHENIA [None]
  - HYPERTENSION [None]
  - INFECTION [None]
